FAERS Safety Report 5408347-7 (Version None)
Quarter: 2007Q3

REPORT INFORMATION
  Report Type: 
  Country: None (occurrence: None)
  Receive Date: 20070803
  Receipt Date: 20070727
  Transmission Date: 20080115
  Serious: Yes (Other)
  Sender: FDA-Public Use
  Company Number: 2007SP015470

PATIENT
  Age: 39 Year
  Sex: Female

DRUGS (1)
  1. TEMODAL [Suspect]
     Indication: GLIOMA
     Dosage: 320 MG; QD; ;PO
     Route: 048
     Dates: start: 20060901, end: 20070601

REACTIONS (2)
  - BALANCE DISORDER [None]
  - DEAFNESS [None]
